FAERS Safety Report 12784393 (Version 1)
Quarter: 2016Q3

REPORT INFORMATION
  Report Type: Not Available
  Country: CA (occurrence: CA)
  Receive Date: 20160927
  Receipt Date: 20160927
  Transmission Date: 20161109
  Serious: Yes (Other)
  Sender: FDA-Public Use
  Company Number: CA-BEH-2011030557

PATIENT
  Age: 43 Year
  Sex: Male
  Weight: 100 kg

DRUGS (1)
  1. PRIVIGEN [Suspect]
     Active Substance: HUMAN IMMUNOGLOBULIN G

REACTIONS (4)
  - Haemolysis [Recovered/Resolved]
  - Haptoglobin decreased [Recovered/Resolved]
  - Spherocytic anaemia [Recovered/Resolved]
  - Haemoglobin decreased [Recovered/Resolved]
